FAERS Safety Report 25592354 (Version 1)
Quarter: 2025Q3

REPORT INFORMATION
  Report Type: Spontaneous
  Country: CN (occurrence: CN)
  Receive Date: 20250722
  Receipt Date: 20250722
  Transmission Date: 20251020
  Serious: Yes (Hospitalization, Other)
  Sender: ALEXION PHARMACEUTICALS
  Company Number: CN-ASTRAZENECA-202507GLO010734CN

PATIENT
  Age: 73 Year
  Sex: Male

DRUGS (3)
  1. DURVALUMAB [Suspect]
     Active Substance: DURVALUMAB
     Indication: Small cell lung cancer
     Route: 065
  2. ETOPOSIDE [Concomitant]
     Active Substance: ETOPOSIDE
     Indication: Small cell lung cancer
     Route: 065
  3. CARBOPLATIN [Concomitant]
     Active Substance: CARBOPLATIN
     Indication: Small cell lung cancer
     Route: 065

REACTIONS (2)
  - Glomerulonephritis rapidly progressive [Unknown]
  - Henoch-Schonlein purpura [Unknown]
